FAERS Safety Report 25712743 (Version 1)
Quarter: 2025Q3

REPORT INFORMATION
  Report Type: Spontaneous
  Country: CA (occurrence: CA)
  Receive Date: 20250821
  Receipt Date: 20250821
  Transmission Date: 20251021
  Serious: Yes (Other)
  Sender: MERCK SHARP & DOHME LLC
  Company Number: CA-009507513-2321173

PATIENT
  Sex: Male

DRUGS (1)
  1. KEYTRUDA [Suspect]
     Active Substance: PEMBROLIZUMAB
     Indication: Prostate cancer
     Route: 065
     Dates: start: 2018, end: 2019

REACTIONS (3)
  - Prostate cancer recurrent [Unknown]
  - Malignant melanoma [Unknown]
  - Bone cancer [Unknown]
